FAERS Safety Report 10263216 (Version 2)
Quarter: 2014Q2

REPORT INFORMATION
  Report Type: Report from Study
  Country: US (occurrence: US)
  Receive Date: 20140626
  Receipt Date: 20140626
  Transmission Date: 20141212
  Serious: Yes (Other)
  Sender: FDA-Public Use
  Company Number: US-MYLANLABS-2014S1008472

PATIENT
  Age: 46 Year
  Sex: Male
  Weight: 69.9 kg

DRUGS (13)
  1. CLOZAPINE TABLETS [Suspect]
     Indication: PSYCHOTIC DISORDER
     Route: 048
     Dates: end: 20140408
  2. CLOZAPINE TABLETS [Suspect]
     Indication: SUICIDAL IDEATION
     Route: 048
     Dates: end: 20140408
  3. CLOZAPINE TABLETS [Suspect]
     Indication: PSYCHOTIC DISORDER
     Route: 048
     Dates: end: 20140408
  4. CLOZAPINE TABLETS [Suspect]
     Indication: SUICIDAL IDEATION
     Route: 048
     Dates: end: 20140408
  5. POLYSPORIN /00130801/ [Concomitant]
  6. COGENTIN [Concomitant]
  7. KLONOPIN [Concomitant]
  8. FOLIC ACID [Concomitant]
  9. COMBIVIR [Concomitant]
     Indication: HIV INFECTION
  10. KALETRA [Concomitant]
     Indication: HIV INFECTION
  11. MULTIVITAMIN [Concomitant]
  12. ZYPREXA [Concomitant]
  13. ATIVAN [Concomitant]

REACTIONS (1)
  - Granulocytopenia [Not Recovered/Not Resolved]
